FAERS Safety Report 7617775-0 (Version None)
Quarter: 2011Q3

REPORT INFORMATION
  Report Type: 
  Country: None (occurrence: None)
  Receive Date: 20110718
  Receipt Date: 20100304
  Transmission Date: 20111222
  Serious: No
  Sender: FDA-Public Use
  Company Number: US-BAYER-201016240NA

PATIENT
  Sex: Female

DRUGS (1)
  1. MIRENA [Suspect]
     Indication: CONTRACEPTION
     Dosage: 20 MCG/24HR, CONT
     Route: 015
     Dates: start: 20090701

REACTIONS (10)
  - MOOD ALTERED [None]
  - ACNE [None]
  - PALPITATIONS [None]
  - BREAST PAIN [None]
  - COITAL BLEEDING [None]
  - HEADACHE [None]
  - HYPOMENORRHOEA [None]
  - WEIGHT INCREASED [None]
  - FATIGUE [None]
  - MEMORY IMPAIRMENT [None]
